FAERS Safety Report 9025519 (Version 2)
Quarter: 2013Q3

REPORT INFORMATION
  Report Type: Spontaneous
  Country: GB (occurrence: DE)
  Receive Date: 20130122
  Receipt Date: 20130802
  Transmission Date: 20140515
  Serious: Yes (Death, Hospitalization, Other)
  Sender: FDA-Public Use
  Company Number: GB-BAYER-2013-007038

PATIENT
  Age: 47 Year
  Sex: Male
  Weight: 79 kg

DRUGS (20)
  1. ULTRAVIST [Suspect]
     Dosage: UNK
     Route: 065
     Dates: start: 20110530
  2. BEVACIZUMAB [Suspect]
     Indication: GLIOBLASTOMA MULTIFORME
  3. IRINOTECAN [Suspect]
     Indication: GLIOBLASTOMA MULTIFORME
  4. TEMOZOLOMIDE [Suspect]
     Indication: GLIOBLASTOMA MULTIFORME
  5. DEXAMETHASONE [Concomitant]
     Dosage: DAILY DOSE 2MG
     Dates: start: 20110202, end: 20110209
  6. DEXAMETHASONE [Concomitant]
     Dosage: DAILY DOSE 4MG
     Dates: start: 20110209, end: 20110218
  7. DEXAMETHASONE [Concomitant]
     Dosage: DAILY DOSE 3MG
     Dates: start: 20110218, end: 20110223
  8. DEXAMETHASONE [Concomitant]
     Dosage: DAILY DOSE 2MG
     Dates: start: 20110223, end: 20110228
  9. DEXAMETHASONE [Concomitant]
     Dosage: DAILY DOSE 1MG
     Dates: start: 20110228, end: 20110305
  10. DEXAMETHASONE [Concomitant]
     Dosage: DAILY DOSE 4MG
     Dates: start: 20110305, end: 20110502
  11. METHYLPREDNISOLON [Concomitant]
  12. LEVETIRACETAM [Concomitant]
  13. IBUPROFEN [Concomitant]
  14. PANTOZOL [Concomitant]
     Dosage: DAILY DOSE 40MG
     Dates: start: 20110110
  15. ONDANSETRON [Concomitant]
  16. SULFAMETHOXAZOLE/TRIMETHOPRIM [Concomitant]
  17. KANAMYCIN [Concomitant]
  18. THIAMAZOLE [Concomitant]
  19. PROPRANOLOL [Concomitant]
  20. RAMIPRIL [Concomitant]

REACTIONS (5)
  - Glioblastoma multiforme [Fatal]
  - General physical health deterioration [Fatal]
  - Hyperthyroidism [Recovered/Resolved]
  - General physical health deterioration [Not Recovered/Not Resolved]
  - Nausea [Recovered/Resolved]
